FAERS Safety Report 10715810 (Version 1)
Quarter: 2015Q1

REPORT INFORMATION
  Report Type: Report from Study
  Country: US (occurrence: None)
  Receive Date: 20150109
  Receipt Date: 20150109
  Transmission Date: 20150721
  Serious: Yes (Hospitalization)
  Sender: FDA-Public Use
  Company Number: 2014PROUSA03759

PATIENT
  Age: 78 Year
  Sex: Male
  Weight: 104.3 kg

DRUGS (23)
  1. CETIRIZINE HCL [Concomitant]
     Active Substance: CETIRIZINE HYDROCHLORIDE
  2. POLYETHYLENE GLYCOL 3350 (MACROGOL 3350) [Concomitant]
  3. FISH OIL (COD-LIVER OIL) [Concomitant]
  4. FINASTERIDE. [Concomitant]
     Active Substance: FINASTERIDE
  5. CALCIUM CARBONATE W/VITAMIN D (CALCIUM CARBONATE, ERGOCALCIFEROL) [Concomitant]
  6. ESOMEPRAZOLE [Concomitant]
     Active Substance: ESOMEPRAZOLE
  7. FENTANYL (FENTANYL CITRATE) [Concomitant]
     Active Substance: FENTANYL CITRATE
  8. WARFARIN (WARFARIN SODIUM) [Concomitant]
  9. FUROSEMIDE. [Concomitant]
     Active Substance: FUROSEMIDE
  10. MONTELUKAST (MONTELUKAST SODIUM) [Concomitant]
  11. TAXOTERE [Concomitant]
     Active Substance: DOCETAXEL
  12. PROVENGE [Suspect]
     Active Substance: SIPULEUCEL-T
     Indication: PROSTATE CANCER METASTATIC
     Dates: start: 20121015, end: 20121015
  13. TAMSULOSIN (TAMSULOSIN HYDROCHLORIDE) [Concomitant]
  14. CITALOPRAM HYDROBROMIDE. [Concomitant]
     Active Substance: CITALOPRAM HYDROBROMIDE
  15. FLUTICASONE [Concomitant]
     Active Substance: FLUTICASONE\FLUTICASONE PROPIONATE
  16. SIMVASTATIN. [Concomitant]
     Active Substance: SIMVASTATIN
  17. DOCUSATE SODIUM. [Concomitant]
     Active Substance: DOCUSATE SODIUM
  18. ZOLPIDEM TARTRATE. [Concomitant]
     Active Substance: ZOLPIDEM TARTRATE
  19. MEGACE [Concomitant]
     Active Substance: MEGESTROL ACETATE
  20. ASPIRIN (E.C.) [ACETYLSALICYLIC ACID] [Suspect]
     Active Substance: ASPIRIN
     Indication: INFLAMMATION
  21. OXYCODONE/ACETAMINOPHEN (OXYCODONE HYDROCHLORIDE, PARACETAMOL) [Concomitant]
  22. RANITIDINE [Concomitant]
     Active Substance: RANITIDINE\RANITIDINE HYDROCHLORIDE
  23. POTASSIUM CHLORIDE. [Concomitant]
     Active Substance: POTASSIUM CHLORIDE

REACTIONS (2)
  - Cerebrovascular accident [None]
  - Haemorrhage intracranial [None]

NARRATIVE: CASE EVENT DATE: 20140511
